FAERS Safety Report 5372437-8 (Version None)
Quarter: 2007Q2

REPORT INFORMATION
  Report Type: 
  Country: None (occurrence: None)
  Receive Date: 20070627
  Receipt Date: 20070615
  Transmission Date: 20071010
  Serious: Yes (Disabling)
  Sender: FDA-Public Use
  Company Number: CH-ELI_LILLY_AND_COMPANY-CH200705004979

PATIENT
  Age: 46 Year
  Sex: Female
  Weight: 60 kg

DRUGS (4)
  1. CYMBALTA [Suspect]
     Indication: FIBROMYALGIA
     Dosage: 60 MG, DAILY (1/D)
     Route: 048
     Dates: start: 20061001, end: 20070210
  2. CYMBALTA [Suspect]
     Dosage: 60 MG, DAILY (1/D)
     Route: 048
     Dates: start: 20070301, end: 20070329
  3. DAFALGAN [Concomitant]
     Indication: FIBROMYALGIA
     Dosage: 1 G, AS NEEDED
  4. AULIN [Concomitant]
     Indication: FIBROMYALGIA
     Dosage: 100 MG, AS NEEDED

REACTIONS (3)
  - HEADACHE [None]
  - MYOKYMIA [None]
  - VERTIGO [None]
